FAERS Safety Report 9213291 (Version 1)
Quarter: 2013Q2

REPORT INFORMATION
  Report Type: Spontaneous
  Country: US (occurrence: None)
  Receive Date: 20130404
  Receipt Date: 20130404
  Transmission Date: 20140414
  Serious: Yes (Other)
  Sender: FDA-Public Use
  Company Number: None

PATIENT
  Age: 30 Year
  Sex: Female
  Weight: 68.04 kg

DRUGS (3)
  1. MIRENA [Suspect]
     Indication: CONTRACEPTION
     Dosage: 1  IUD   EVERY 5 YRS  INTRA-UTERINE
     Route: 015
     Dates: start: 20080505, end: 20120822
  2. BENADRYL [Concomitant]
  3. PRENATAL VITAMIN [Concomitant]

REACTIONS (2)
  - Abortion spontaneous [None]
  - Medical device complication [None]
